FAERS Safety Report 6697184-1 (Version None)
Quarter: 2010Q2

REPORT INFORMATION
  Report Type: 
  Country: None (occurrence: None)
  Receive Date: 20100426
  Receipt Date: 20100416
  Transmission Date: 20101027
  Serious: Yes (Other)
  Sender: FDA-Public Use
  Company Number: US-PFIZER INC-2010049225

PATIENT
  Sex: Male
  Weight: 86.168 kg

DRUGS (3)
  1. XALATAN [Suspect]
     Indication: INTRAOCULAR PRESSURE INCREASED
     Dosage: 1 DROP IN EACH EYE
     Dates: start: 20100408
  2. XALATAN [Suspect]
     Indication: KERATOMILEUSIS
  3. PRED FORTE [Concomitant]
     Dosage: UNK

REACTIONS (2)
  - EYE DISORDER [None]
  - VISION BLURRED [None]
